FAERS Safety Report 20050688 (Version 3)
Quarter: 2021Q4

REPORT INFORMATION
  Report Type: Report from Study
  Country: ES (occurrence: ES)
  Receive Date: 20211109
  Receipt Date: 20211202
  Transmission Date: 20220304
  Serious: Yes (Other)
  Sender: FDA-Public Use
  Company Number: ES-ABBVIE-21K-144-4148051-00

PATIENT
  Sex: Female
  Weight: 75.4 kg

DRUGS (2)
  1. CARBIDOPA\LEVODOPA [Suspect]
     Active Substance: CARBIDOPA\LEVODOPA
     Indication: Parkinson^s disease
     Route: 050
     Dates: start: 20210826, end: 2021
  2. CARBIDOPA\LEVODOPA [Suspect]
     Active Substance: CARBIDOPA\LEVODOPA
     Dosage: INCREASE OF EXTRA DOSE TO 3 ML
     Route: 050
     Dates: start: 2021

REACTIONS (7)
  - Osteoarthritis [Not Recovered/Not Resolved]
  - Wrong technique in device usage process [Unknown]
  - Stoma site induration [Unknown]
  - Stoma site hypergranulation [Not Recovered/Not Resolved]
  - Stoma site reaction [Unknown]
  - Product cleaning inadequate [Recovered/Resolved]
  - Cartilage injury [Unknown]

NARRATIVE: CASE EVENT DATE: 20210101
